FAERS Safety Report 5509009-8 (Version None)
Quarter: 2007Q4

REPORT INFORMATION
  Report Type: 
  Country: None (occurrence: None)
  Receive Date: 20071107
  Receipt Date: 20071026
  Transmission Date: 20080405
  Serious: Yes (Life-Threatening, Hospitalization)
  Sender: FDA-Public Use
  Company Number: JP-PURDUE-MAG_2007_0000601

PATIENT
  Age: 66 Year
  Sex: Male

DRUGS (12)
  1. OXYCODONE HCL [Suspect]
     Indication: CANCER PAIN
     Dosage: 10 MG, DAILY
     Route: 048
     Dates: start: 20070425
  2. OXYCODONE HCL [Suspect]
     Dosage: 100 MG, BID
     Route: 048
     Dates: start: 20070918, end: 20071010
  3. OXYCODONE HCL [Suspect]
     Dosage: 10 MG, BID
     Route: 048
     Dates: start: 20070502
  4. SELBEX [Concomitant]
     Indication: GASTRITIS
     Dosage: 100 MG, DAILY
     Route: 048
     Dates: start: 20070425, end: 20071010
  5. YODEL [Concomitant]
     Indication: CONSTIPATION
     Dosage: 2 DF, DAILY
     Route: 048
     Dates: end: 20071010
  6. LENDORMIN [Concomitant]
     Indication: INSOMNIA
     Dosage: .25 MG, DAILY
     Route: 048
     Dates: end: 20071010
  7. GASMOTIN [Concomitant]
     Indication: CONSTIPATION
     Dosage: 3 DF, DAILY
     Route: 048
     Dates: end: 20071010
  8. MAGMITT [Concomitant]
     Indication: CONSTIPATION
     Dosage: 3 DF, DAILY
     Route: 048
     Dates: end: 20071010
  9. DAI-KENCHU-TO [Concomitant]
     Indication: CONSTIPATION
     Dosage: 15 GRAM, DAILY
     Route: 048
     Dates: end: 20071010
  10. ISOVORIN [Concomitant]
     Indication: COLON CANCER RECURRENT
     Route: 065
     Dates: start: 20070502
  11. FLUOROURACIL [Concomitant]
     Indication: COLON CANCER RECURRENT
     Route: 065
     Dates: start: 20070502
  12. ELPLAT [Concomitant]
     Indication: COLON CANCER RECURRENT
     Dosage: UNK, UNK
     Route: 065
     Dates: start: 20070502

REACTIONS (1)
  - LARGE INTESTINE PERFORATION [None]
